FAERS Safety Report 6193322-8 (Version None)
Quarter: 2009Q2

REPORT INFORMATION
  Report Type: 
  Country: None (occurrence: None)
  Receive Date: 20090513
  Receipt Date: 20090513
  Transmission Date: 20091009
  Serious: Yes (Death)
  Sender: FDA-Public Use
  Company Number: None

PATIENT
  Age: 68 Year
  Sex: Female
  Weight: 64.9097 kg

DRUGS (4)
  1. SORAFENIB [Suspect]
     Indication: METASTASES TO CENTRAL NERVOUS SYSTEM
     Dosage: 400 MG BID
  2. MORPHINE [Concomitant]
  3. ATIVAN [Concomitant]
  4. COMPAZINE [Concomitant]

REACTIONS (1)
  - DYSPNOEA [None]
